FAERS Safety Report 6509220-3 (Version None)
Quarter: 2009Q4

REPORT INFORMATION
  Report Type: 
  Country: None (occurrence: None)
  Receive Date: 20091221
  Receipt Date: 20091215
  Transmission Date: 20100525
  Serious: Yes (Other)
  Sender: FDA-Public Use
  Company Number: JP-B.I. PHARMACEUTICALS,INC./RIDGEFIELD-2009-BP-14220YA

PATIENT
  Age: 85 Year
  Sex: Male

DRUGS (8)
  1. TAMSULOSIN HYDROCHLORIDE [Suspect]
     Indication: BENIGN PROSTATIC HYPERPLASIA
     Dosage: 0.2 MG
     Route: 048
     Dates: start: 20090201
  2. AMLODIN (AMLODIPOINE BESILATE) [Concomitant]
  3. ASPIRIN [Concomitant]
  4. PERSANTIN [Concomitant]
  5. KERLONE [Concomitant]
  6. JUVELA NICOTINATE (TOCOPHERYL NICOTINATE) [Concomitant]
  7. METHYCOBAL (MECOBALAMIN) [Concomitant]
  8. DEPAS (ETIZOLAM) [Concomitant]

REACTIONS (2)
  - ATRIAL FIBRILLATION [None]
  - SICK SINUS SYNDROME [None]
